FAERS Safety Report 5306149-3 (Version None)
Quarter: 2007Q2

REPORT INFORMATION
  Report Type: 
  Country: None (occurrence: None)
  Receive Date: 20070420
  Receipt Date: 20070420
  Transmission Date: 20071010
  Serious: Yes (Other)
  Sender: FDA-Public Use
  Company Number: None

PATIENT
  Age: 62 Year
  Sex: Female
  Weight: 52.1637 kg

DRUGS (1)
  1. AGRYLIN [Suspect]
     Indication: BLOOD DISORDER
     Dosage: 0.5 MG 2 PO BID
     Route: 048
     Dates: start: 20060501

REACTIONS (2)
  - THERAPEUTIC RESPONSE UNEXPECTED WITH DRUG SUBSTITUTION [None]
  - WHITE BLOOD CELL COUNT INCREASED [None]
